FAERS Safety Report 13530996 (Version 2)
Quarter: 2017Q2

REPORT INFORMATION
  Report Type: Spontaneous
  Country: US (occurrence: US)
  Receive Date: 20170510
  Receipt Date: 20170524
  Transmission Date: 20170830
  Serious: Yes (Other)
  Sender: FDA-Public Use
  Company Number: US-ASTRAZENECA-2017SE46549

PATIENT
  Age: 77 Year
  Sex: Female
  Weight: 67.1 kg

DRUGS (1)
  1. BEVESPI AEROSPHERE [Suspect]
     Active Substance: FORMOTEROL FUMARATE\GLYCOPYRROLATE
     Indication: CHRONIC OBSTRUCTIVE PULMONARY DISEASE
     Dosage: 9/4.8UG, UNKNOWN
     Route: 055
     Dates: start: 20170206, end: 20170427

REACTIONS (2)
  - Adverse drug reaction [Recovered/Resolved]
  - Cough [Recovered/Resolved]
